FAERS Safety Report 8965843 (Version 3)
Quarter: 2013Q1

REPORT INFORMATION
  Report Type: Spontaneous
  Country: US (occurrence: US)
  Receive Date: 20121217
  Receipt Date: 20130117
  Transmission Date: 20140127
  Serious: Yes (Hospitalization, Other)
  Sender: FDA-Public Use
  Company Number: US-PFIZER INC-2012314944

PATIENT
  Age: 59 Year
  Sex: Female
  Weight: 100 kg

DRUGS (27)
  1. SUTENT [Suspect]
     Indication: PANCREATIC CARCINOMA
     Dosage: 12.5 MG, 3X/DAY
     Dates: start: 20120905
  2. SUTENT [Suspect]
     Dosage: 12.5 MG, 3X/DAY
     Dates: start: 20121005
  3. AFINITOR [Suspect]
     Dosage: UNK
     Dates: end: 20120919
  4. NOVOLOG [Concomitant]
     Dosage: UNK
  5. LANTUS [Concomitant]
     Dosage: UNK
  6. TRIAMTERENE [Concomitant]
     Dosage: UNK
  7. CRESTOR [Concomitant]
     Dosage: UNK
  8. METOPROLOL [Concomitant]
     Dosage: UNK
  9. PANCRELIPASE [Concomitant]
     Dosage: UNK, AS NEEDED
  10. OXYCODONE [Concomitant]
     Dosage: 5 MG, AS NEEDED
  11. HYDROMORPHONE [Concomitant]
     Indication: PAIN
     Dosage: 2-4 MG, AS NEEDED
  12. HYDROMORPHONE [Concomitant]
     Indication: NAUSEA
  13. HYDROMORPHONE [Concomitant]
     Indication: ANXIETY
  14. TRICOR [Concomitant]
     Dosage: 48 MG, 2X/DAY
  15. OMEPRAZOLE [Concomitant]
     Dosage: UNK
  16. STRESSTABS [Concomitant]
     Dosage: UNK
  17. GINKGO BILOBA [Concomitant]
     Dosage: UNK
  18. VITAMIN D [Concomitant]
     Dosage: UNK
  19. CURCUMEN [Concomitant]
     Dosage: UNK
  20. FISH OIL [Concomitant]
     Dosage: THREE TIMES/WEEK
  21. SANDOSTATIN [Concomitant]
     Dosage: MONTHLY, NOW TWO IN NUMBER
  22. SANDOSTATIN [Concomitant]
     Dosage: ONE INJECTION MONTHLY
  23. CANNABIS SATIVA SUBSP. INDICA TOP [Concomitant]
     Indication: PAIN
     Dosage: UNK
  24. CANNABIS SATIVA SUBSP. INDICA TOP [Concomitant]
     Indication: NAUSEA
  25. CANNABIS SATIVA SUBSP. INDICA TOP [Concomitant]
     Indication: ANXIETY
  26. TOPROL XL [Concomitant]
     Dosage: 50 MG, 2X/DAY
  27. HERBAL NOS/MINERALS NOS/VITAMINS NOS [Concomitant]
     Dosage: UNK

REACTIONS (14)
  - Blood triglycerides increased [Unknown]
  - Pain in jaw [Unknown]
  - Haemorrhoidal haemorrhage [Unknown]
  - Dry skin [Unknown]
  - Burning sensation [Unknown]
  - Pain in extremity [Unknown]
  - Epistaxis [Unknown]
  - Diarrhoea [Unknown]
  - Glossodynia [Unknown]
  - Palmar-plantar erythrodysaesthesia syndrome [Unknown]
  - Nausea [Unknown]
  - Vomiting [Unknown]
  - Nasopharyngitis [Unknown]
  - Hypertension [Unknown]
